FAERS Safety Report 7208663-2 (Version None)
Quarter: 2011Q1

REPORT INFORMATION
  Report Type: 
  Country: None (occurrence: None)
  Receive Date: 20110104
  Receipt Date: 20101223
  Transmission Date: 20110831
  Serious: Yes (Other)
  Sender: FDA-Public Use
  Company Number: PHHY2010US88113

PATIENT
  Sex: Female

DRUGS (8)
  1. GILENYA [Suspect]
     Dosage: UNK
     Route: 048
     Dates: start: 20101222
  2. TOPAMAX [Concomitant]
  3. CYMBALTA [Concomitant]
  4. ZANAFLEX [Concomitant]
     Dosage: UNK
  5. BACLOFEN [Concomitant]
     Dosage: UNK
  6. OXY [Concomitant]
     Dosage: UNK
  7. ADDERALL XR 10 [Concomitant]
     Dosage: UNK
  8. LAMICTAL [Concomitant]
     Dosage: UNK

REACTIONS (5)
  - COUGH [None]
  - BACK PAIN [None]
  - PROTEIN URINE PRESENT [None]
  - INTERVERTEBRAL DISC PROTRUSION [None]
  - KIDNEY INFECTION [None]
